FAERS Safety Report 9413766 (Version 1)
Quarter: 2013Q3

REPORT INFORMATION
  Report Type: Spontaneous
  Country: None (occurrence: None)
  Receive Date: 20130708
  Receipt Date: 20130708
  Transmission Date: 20140515
  Serious: Yes (Other)
  Sender: FDA-Public Use
  Company Number: 09-AUR-09398

PATIENT
  Age: 26 Year
  Sex: Female

DRUGS (2)
  1. CIPROFLOXACIN (CIPROFLOXACIN) [Suspect]
     Indication: BRONCHITIS
     Route: 048
  2. PREDNISONE (PREDNISONE) [Suspect]

REACTIONS (7)
  - Stevens-Johnson syndrome [None]
  - Vanishing bile duct syndrome [None]
  - Drug ineffective [None]
  - Cushing^s syndrome [None]
  - Pyrexia [None]
  - Dysphagia [None]
  - Dysuria [None]
